FAERS Safety Report 8077069-9 (Version None)
Quarter: 2012Q1

REPORT INFORMATION
  Report Type: 
  Country: None (occurrence: None)
  Receive Date: 20120127
  Receipt Date: 20120125
  Transmission Date: 20120608
  Serious: Yes (Death, Hospitalization)
  Sender: FDA-Public Use
  Company Number: JP-B.I. PHARMACEUTICALS,INC./RIDGEFIELD-2011-BP-28846NB

PATIENT
  Sex: Female

DRUGS (6)
  1. MYONAL [Suspect]
     Route: 048
     Dates: start: 20101207, end: 20101212
  2. OMNIPAQUE 300 [Suspect]
     Route: 065
     Dates: start: 20101207, end: 20101207
  3. LOXONIN [Suspect]
     Route: 048
     Dates: start: 20101207, end: 20101212
  4. ZOLPIDEM [Suspect]
     Route: 065
     Dates: end: 20101213
  5. TELMISARTAN AND HYDROCHLOROTHIAZIDE [Suspect]
     Dosage: STRENGTH:TELMISARTAN80MG/HYDROCHLOROTHIAZIDE12.5MG
     Route: 048
     Dates: start: 20101001, end: 20101213
  6. MUCOSTA [Suspect]
     Route: 048
     Dates: start: 20101207, end: 20101212

REACTIONS (1)
  - DRUG ERUPTION [None]
